FAERS Safety Report 9992396 (Version 14)
Quarter: 2016Q1

REPORT INFORMATION
  Report Type: Spontaneous
  Country: US (occurrence: US)
  Receive Date: 20140310
  Receipt Date: 20160203
  Transmission Date: 20160526
  Serious: Yes (Hospitalization, Other)
  Sender: FDA-Public Use
  Company Number: US-GLAXOSMITHKLINE-A1064099A

PATIENT
  Age: 75 Year
  Sex: Female

DRUGS (14)
  1. FLOLAN [Suspect]
     Active Substance: EPOPROSTENOL SODIUM
     Indication: COR PULMONALE CHRONIC
     Dosage: 9.5 NG/KG/MINUTE
     Route: 042
     Dates: start: 20131031
  2. REVATIO [Concomitant]
     Active Substance: SILDENAFIL CITRATE
  3. FLOLAN [Suspect]
     Active Substance: EPOPROSTENOL SODIUM
     Dosage: 16.5 NG/KG/MIN
     Route: 042
  4. SILDENAFIL CITRATE. [Concomitant]
     Active Substance: SILDENAFIL CITRATE
  5. AMLODIPINE [Concomitant]
     Active Substance: AMLODIPINE BESYLATE
  6. FLOLAN [Suspect]
     Active Substance: EPOPROSTENOL SODIUM
     Dosage: 16.5 NG/KG/MIN CO, VIAL STRENGTH: 1.5 MG
     Route: 042
  7. FLOLAN [Suspect]
     Active Substance: EPOPROSTENOL SODIUM
     Dosage: 16.5 NG/KG/MIN CONTINUOUSLY
  8. FLOLAN [Suspect]
     Active Substance: EPOPROSTENOL SODIUM
     Dosage: 16.5 NG/KG/MIN CO, VIAL STRENGTH: 1.5 MG
     Route: 042
  9. FLOLAN [Suspect]
     Active Substance: EPOPROSTENOL SODIUM
     Dosage: 22 DF, CO
  10. FLOLAN [Suspect]
     Active Substance: EPOPROSTENOL SODIUM
     Indication: POLYARTHRITIS
     Dosage: 10.5 NG/KG/MIN CO
     Route: 042
     Dates: start: 20131031
  11. FLOLAN [Suspect]
     Active Substance: EPOPROSTENOL SODIUM
     Dosage: UNK
     Dates: start: 20131031
  12. FLOLAN [Suspect]
     Active Substance: EPOPROSTENOL SODIUM
     Dosage: 16.5 NG/KG/MIN CONTINUOUSLY
  13. FLOLAN [Suspect]
     Active Substance: EPOPROSTENOL SODIUM
     Dosage: 16.5 NG/KG/MIN CONTINUOUSLY
     Dates: start: 20131031
  14. FLOLAN [Suspect]
     Active Substance: EPOPROSTENOL SODIUM
     Indication: PULMONARY HYPERTENSION
     Dosage: 15.5 NG/KG/MIN
     Dates: start: 20131101

REACTIONS (17)
  - Catheter placement [Unknown]
  - Fall [Unknown]
  - Dyspnoea exertional [Recovered/Resolved]
  - Catheter site haemorrhage [Unknown]
  - Haematoma [Unknown]
  - Central venous catheterisation [Recovered/Resolved]
  - Central venous catheterisation [Unknown]
  - Complication associated with device [Recovered/Resolved]
  - Increased upper airway secretion [Unknown]
  - Hospitalisation [Recovered/Resolved]
  - Oesophageal dilation procedure [Unknown]
  - Head injury [Unknown]
  - Device dislocation [Unknown]
  - Gastric disorder [Unknown]
  - Gastrooesophageal reflux disease [Unknown]
  - Cough [Unknown]
  - Catheter site erythema [Unknown]

NARRATIVE: CASE EVENT DATE: 201408
